FAERS Safety Report 6274306-8 (Version None)
Quarter: 2009Q3

REPORT INFORMATION
  Report Type: 
  Country: None (occurrence: None)
  Receive Date: 20090716
  Receipt Date: 20090630
  Transmission Date: 20100115
  Serious: Yes (Other)
  Sender: FDA-Public Use
  Company Number: 6052642

PATIENT
  Age: 65 Year
  Sex: Male

DRUGS (6)
  1. LEVOTHYROXINE SODIUM [Suspect]
     Indication: THYROID NEOPLASM
     Dosage: 125 MCG, ORAL; 150 MCG (150 MCG, 1 IN 1 D) 1) ORAL
     Route: 048
     Dates: start: 20080601, end: 20080901
  2. LEVOTHYROXINE SODIUM [Suspect]
     Indication: THYROIDECTOMY
     Dosage: 125 MCG, ORAL; 150 MCG (150 MCG, 1 IN 1 D) 1) ORAL
     Route: 048
     Dates: start: 20080601, end: 20080901
  3. LEVOTHYROXINE SODIUM [Suspect]
     Indication: THYROID NEOPLASM
     Dosage: 125 MCG, ORAL; 150 MCG (150 MCG, 1 IN 1 D) 1) ORAL
     Route: 048
     Dates: start: 20080901, end: 20090301
  4. LEVOTHYROXINE SODIUM [Suspect]
     Indication: THYROIDECTOMY
     Dosage: 125 MCG, ORAL; 150 MCG (150 MCG, 1 IN 1 D) 1) ORAL
     Route: 048
     Dates: start: 20080901, end: 20090301
  5. ACTOS (PIOOLITAZONE) [Concomitant]
  6. APROVEL (IREESARTAN) [Concomitant]

REACTIONS (2)
  - BLOOD THYROID STIMULATING HORMONE INCREASED [None]
  - DRUG INEFFECTIVE [None]
